FAERS Safety Report 9454660 (Version 1)
Quarter: 2013Q3

REPORT INFORMATION
  Report Type: Report from Study
  Country: JP (occurrence: JP)
  Receive Date: 20130812
  Receipt Date: 20130812
  Transmission Date: 20140515
  Serious: Yes (Other)
  Sender: FDA-Public Use
  Company Number: JP-B.I. PHARMACEUTICALS,INC./RIDGEFIELD-2013-BI-24345GD

PATIENT
  Sex: Male

DRUGS (2)
  1. PRADAXA [Suspect]
     Indication: ATRIAL FIBRILLATION
  2. UNFRACTIONATED HEPARIN [Suspect]
     Dosage: AS A BOLUS AFTER TRANSEPTAL PUNCTURE; MAINTAINING AN ACTIVATED CLOTTING TIME AT 250-300 S

REACTIONS (1)
  - Cerebral infarction [Unknown]
